FAERS Safety Report 9321592 (Version 3)
Quarter: 2013Q3

REPORT INFORMATION
  Report Type: Spontaneous
  Country: US (occurrence: US)
  Receive Date: 20130531
  Receipt Date: 20130916
  Transmission Date: 20140515
  Serious: No
  Sender: FDA-Public Use
  Company Number: US-PFIZER INC-2013165001

PATIENT
  Age: 67 Year
  Sex: Female
  Weight: 63 kg

DRUGS (3)
  1. CHANTIX [Suspect]
     Indication: SMOKING CESSATION THERAPY
     Dosage: 0.5 MG, 1X/DAY
     Route: 048
     Dates: start: 2009, end: 2009
  2. CHANTIX [Suspect]
     Dosage: UNK
     Route: 048
     Dates: start: 2009, end: 2009
  3. LISINOPRIL [Concomitant]
     Dosage: UNK

REACTIONS (1)
  - Neuroma [Not Recovered/Not Resolved]
